FAERS Safety Report 6360763-5 (Version None)
Quarter: 2009Q3

REPORT INFORMATION
  Report Type: 
  Country: None (occurrence: None)
  Receive Date: 20090918
  Receipt Date: 20090910
  Transmission Date: 20100115
  Serious: Yes (Hospitalization)
  Sender: FDA-Public Use
  Company Number: AR-JNJFOC-20080702478

PATIENT
  Age: 6 Year
  Sex: Male
  Weight: 16 kg

DRUGS (5)
  1. IBUPIRAC 4% [Suspect]
     Route: 048
  2. IBUPIRAC 4% [Suspect]
     Indication: OROPHARYNGEAL PAIN
     Route: 048
  3. CELETIDE [Concomitant]
  4. SINGULAIR [Concomitant]
     Route: 048
  5. SUPRADYN [Concomitant]
     Route: 048

REACTIONS (1)
  - HYPOTHERMIA [None]
